FAERS Safety Report 21975661 (Version 2)
Quarter: 2023Q1

REPORT INFORMATION
  Report Type: Report from Study
  Country: CA (occurrence: CA)
  Receive Date: 20230210
  Receipt Date: 20230307
  Transmission Date: 20230417
  Serious: Yes (Other)
  Sender: FDA-Public Use
  Company Number: CA-002147023-NVSC2023CA001539

PATIENT
  Age: 51 Year
  Sex: Female
  Weight: 52 kg

DRUGS (2)
  1. TAFINLAR [Suspect]
     Active Substance: DABRAFENIB MESYLATE
     Indication: Metastatic malignant melanoma
     Dosage: 150 MG, BID
     Route: 048
     Dates: start: 20221201, end: 20230221
  2. MEKINIST [Suspect]
     Active Substance: TRAMETINIB DIMETHYL SULFOXIDE
     Indication: Metastatic malignant melanoma
     Dosage: 2 MG, QD
     Route: 048
     Dates: start: 20221201, end: 20230221

REACTIONS (11)
  - Panniculitis [Recovering/Resolving]
  - Swelling [Unknown]
  - Inflammation [Unknown]
  - Pain in extremity [Recovering/Resolving]
  - Skin discolouration [Recovering/Resolving]
  - Neutrophil count increased [Unknown]
  - Feeling cold [Unknown]
  - Fatigue [Unknown]
  - Nasopharyngitis [Unknown]
  - Cough [Unknown]
  - Vision blurred [Unknown]

NARRATIVE: CASE EVENT DATE: 20221201
